FAERS Safety Report 19631500 (Version 1)
Quarter: 2021Q3

REPORT INFORMATION
  Report Type: Spontaneous
  Country: US (occurrence: US)
  Receive Date: 20210728
  Receipt Date: 20210728
  Transmission Date: 20211014
  Serious: No
  Sender: FDA-Public Use
  Company Number: US-ROCHE-2639784

PATIENT
  Sex: Female

DRUGS (1)
  1. XELODA [Suspect]
     Active Substance: CAPECITABINE
     Indication: BREAST CANCER
     Route: 048
     Dates: start: 20200612

REACTIONS (6)
  - Acne [Unknown]
  - Toothache [Unknown]
  - Myalgia [Unknown]
  - Dyspnoea [Recovered/Resolved]
  - Dry skin [Unknown]
  - Dry mouth [Unknown]
